FAERS Safety Report 8290258-3 (Version None)
Quarter: 2012Q2

REPORT INFORMATION
  Report Type: 
  Country: None (occurrence: None)
  Receive Date: 20120417
  Receipt Date: 20120411
  Transmission Date: 20120825
  Serious: Yes (Hospitalization)
  Sender: FDA-Public Use
  Company Number: FR-B.I. PHARMACEUTICALS,INC./RIDGEFIELD-2012-FF-00439FF

PATIENT
  Sex: Female
  Weight: 66 kg

DRUGS (3)
  1. PRADAXA [Suspect]
     Indication: KNEE ARTHROPLASTY
     Dosage: 110 MG
     Route: 048
     Dates: start: 20120126, end: 20120126
  2. KETOPROFEN [Concomitant]
     Dosage: 200 MG
     Dates: end: 20120203
  3. PRADAXA [Suspect]
     Dosage: 220 MG
     Route: 048
     Dates: start: 20120127

REACTIONS (1)
  - JOINT STIFFNESS [None]
